FAERS Safety Report 24554495 (Version 3)
Quarter: 2025Q4

REPORT INFORMATION
  Report Type: Report from Study
  Country: US (occurrence: US)
  Receive Date: 20241028
  Receipt Date: 20251128
  Transmission Date: 20260118
  Serious: No
  Sender: DR REDDYS
  Company Number: US-DRL-USA-CLI/USA/24/0015337

PATIENT
  Age: 24 Year
  Sex: Female
  Weight: 120 kg

DRUGS (1)
  1. JAVYGTOR [Suspect]
     Active Substance: SAPROPTERIN DIHYDROCHLORIDE
     Indication: Phenylketonuria
     Dosage: DAILY DOSE: 2000 MG
     Route: 048
     Dates: start: 20241007, end: 20241020

REACTIONS (3)
  - Exposure during pregnancy [Unknown]
  - Morning sickness [Unknown]
  - Live birth [Unknown]

NARRATIVE: CASE EVENT DATE: 20241007
